FAERS Safety Report 7047622-X (Version None)
Quarter: 2010Q4

REPORT INFORMATION
  Report Type: 
  Country: None (occurrence: None)
  Receive Date: 20101015
  Receipt Date: 20101004
  Transmission Date: 20110411
  Serious: Yes (Hospitalization)
  Sender: FDA-Public Use
  Company Number: PL-WATSON-2010-13474

PATIENT
  Age: 57 Year
  Sex: Male

DRUGS (2)
  1. FLUTAMIDE (WATSON LABORATORIES) [Suspect]
     Indication: PROSTATE CANCER METASTATIC
     Dosage: THREE TIMES DAILY
     Route: 048
     Dates: start: 20020101
  2. TRELSTAR UNKNOWN STRENGTH (WATSON LABORATORIES) [Suspect]
     Indication: PROSTATE CANCER
     Dosage: ONCE PER 12 WEEKS
     Route: 058
     Dates: start: 20020101

REACTIONS (1)
  - PSORIASIS [None]
